FAERS Safety Report 9264962 (Version 1)
Quarter: 2013Q2

REPORT INFORMATION
  Report Type: Spontaneous
  Country: OM (occurrence: None)
  Receive Date: 20130429
  Receipt Date: 20130429
  Transmission Date: 20140414
  Serious: Yes (Other)
  Sender: FDA-Public Use
  Company Number: FK201301230

PATIENT
  Age: 55 Year
  Sex: Male

DRUGS (3)
  1. PIPERACILLIN/TAZOBACTAM [Suspect]
     Indication: ANTIBIOTIC PROPHYLAXIS
     Route: 042
  2. METRONIDAZOLE [Suspect]
     Indication: ANTIBIOTIC PROPHYLAXIS
     Route: 042
  3. DOPAMINE [Suspect]
     Indication: PROCEDURAL HYPOTENSION
     Dosage: 5 UG/KG/MIN
     Route: 042

REACTIONS (1)
  - Torsade de pointes [None]
